FAERS Safety Report 8084729-2 (Version None)
Quarter: 2012Q1

REPORT INFORMATION
  Report Type: 
  Country: None (occurrence: None)
  Receive Date: 20120128
  Receipt Date: 20110317
  Transmission Date: 20120608
  Serious: No
  Sender: FDA-Public Use
  Company Number: US-ABBOTT-11P-163-0712395-00

PATIENT
  Age: 56 Year
  Sex: Female

DRUGS (5)
  1. ACTONEL [Concomitant]
     Indication: OSTEOPOROSIS
     Dosage: WEEKLY
  2. COLAZOL [Concomitant]
     Indication: CROHN'S DISEASE
  3. HUMIRA [Suspect]
     Indication: CROHN'S DISEASE
     Dates: start: 20080101
  4. FOLIC ACID [Concomitant]
     Indication: CROHN'S DISEASE
     Dosage: DAILY
     Route: 048
  5. ZYRTEC [Concomitant]
     Indication: SEASONAL ALLERGY

REACTIONS (3)
  - NASOPHARYNGITIS [None]
  - NASAL CONGESTION [None]
  - THROAT IRRITATION [None]
